FAERS Safety Report 5249118-4 (Version None)
Quarter: 2007Q1

REPORT INFORMATION
  Report Type: 
  Country: None (occurrence: None)
  Receive Date: 20070228
  Receipt Date: 20070215
  Transmission Date: 20070707
  Serious: Yes (Hospitalization)
  Sender: FDA-Public Use
  Company Number: DE-BRISTOL-MYERS SQUIBB COMPANY-13689922

PATIENT
  Age: 50 Year
  Sex: Female

DRUGS (3)
  1. ENDOXAN [Suspect]
     Indication: BREAST CANCER
     Route: 042
     Dates: start: 20061108, end: 20061108
  2. FLUOROURACIL [Suspect]
     Indication: BREAST CANCER
     Route: 042
  3. EPIRUBICIN [Suspect]
     Indication: BREAST CANCER
     Route: 042

REACTIONS (1)
  - THROMBOSIS [None]
